FAERS Safety Report 9767617 (Version 2)
Quarter: 2014Q3

REPORT INFORMATION
  Report Type: Report from Study
  Country: AU (occurrence: AU)
  Receive Date: 20131217
  Receipt Date: 20140812
  Transmission Date: 20150326
  Serious: Yes (Death, Hospitalization)
  Sender: FDA-Public Use
  Company Number: PHHY2013AU146830

PATIENT
  Age: 63 Year
  Sex: Female

DRUGS (2)
  1. AFINITOR [Suspect]
     Active Substance: EVEROLIMUS
     Indication: BREAST CANCER METASTATIC
     Dosage: 10 MG, DAILY
     Route: 048
     Dates: start: 20130717, end: 20131203
  2. EXEMESTANE. [Concomitant]
     Active Substance: EXEMESTANE
     Indication: BREAST CANCER METASTATIC
     Dosage: 25 MG, DAILY
     Route: 048
     Dates: start: 20130717, end: 20131203

REACTIONS (11)
  - Pleural effusion [Unknown]
  - Hypophagia [Unknown]
  - Asthenia [Unknown]
  - Decreased appetite [Unknown]
  - Hydronephrosis [Unknown]
  - Dyspnoea [Unknown]
  - Breast cancer metastatic [Fatal]
  - Ascites [Unknown]
  - Hepatic failure [Unknown]
  - Coma [Fatal]
  - Renal failure [Unknown]

NARRATIVE: CASE EVENT DATE: 20131212
